FAERS Safety Report 11393313 (Version 1)
Quarter: 2015Q3

REPORT INFORMATION
  Report Type: Report from Study
  Country: PL (occurrence: PL)
  Receive Date: 20150818
  Receipt Date: 20150818
  Transmission Date: 20151125
  Serious: Yes (Hospitalization)
  Sender: FDA-Public Use
  Company Number: PL-TEVA-586702USA

PATIENT
  Age: 51 Year
  Sex: Male

DRUGS (51)
  1. OBINUTUZUMAB [Suspect]
     Active Substance: OBINUTUZUMAB
     Indication: CHRONIC LYMPHOCYTIC LEUKAEMIA
     Route: 042
     Dates: start: 20141231, end: 20141231
  2. CLEMASTINE [Concomitant]
     Active Substance: CLEMASTINE
     Dosage: 2 MG, TOTAL DOSE (SINGLE DOSE)
     Route: 048
     Dates: start: 20150311, end: 20150311
  3. CEFUROXIME. [Concomitant]
     Active Substance: CEFUROXIME
     Indication: PRODUCT USED FOR UNKNOWN INDICATION
     Route: 042
     Dates: start: 20150102, end: 20150107
  4. KLACID                             /00984602/ [Concomitant]
     Indication: PRODUCT USED FOR UNKNOWN INDICATION
     Route: 048
     Dates: start: 20150102, end: 20150107
  5. ENCORTON                           /00044701/ [Concomitant]
     Indication: PRODUCT USED FOR UNKNOWN INDICATION
     Route: 048
     Dates: start: 20150212, end: 20150408
  6. OBINUTUZUMAB [Suspect]
     Active Substance: OBINUTUZUMAB
     Route: 042
     Dates: start: 20150211, end: 20150211
  7. DEXAVEN [Concomitant]
     Active Substance: DEXAMETHASONE
     Dosage: 20 MG, TOTAL DOSE (SINGLE DOSE)
     Route: 042
     Dates: start: 20150107, end: 20150107
  8. CLEMASTINE [Concomitant]
     Active Substance: CLEMASTINE
     Dosage: 2 MG, TOTAL DOSE (SINGLE DOSE)
     Route: 048
     Dates: start: 20150211, end: 20150211
  9. ENCORTON                           /00044701/ [Concomitant]
     Route: 048
     Dates: start: 20150409, end: 20150702
  10. ENCORTON                           /00044701/ [Concomitant]
     Route: 048
     Dates: start: 20150703, end: 20150707
  11. BENDAMUSTINE HYDROCHLORIDE [Suspect]
     Active Substance: BENDAMUSTINE HYDROCHLORIDE
     Dosage: UNK, ONCE DAILY
     Route: 042
     Dates: start: 20150212, end: 20150212
  12. OBINUTUZUMAB [Suspect]
     Active Substance: OBINUTUZUMAB
     Route: 042
     Dates: start: 20150311, end: 20150311
  13. DEXAVEN [Concomitant]
     Active Substance: DEXAMETHASONE
     Indication: PRODUCT USED FOR UNKNOWN INDICATION
     Dosage: 20 MG, TOTAL DOSE (SINGLE DOSE)
     Route: 042
     Dates: start: 20141231, end: 20141231
  14. DEXAVEN [Concomitant]
     Active Substance: DEXAMETHASONE
     Dosage: 4 MG, TOTAL DOSE (SINGLE DOSE)
     Route: 042
     Dates: start: 20150102, end: 20150102
  15. DEXAVEN [Concomitant]
     Active Substance: DEXAMETHASONE
     Dosage: 20 MG, TOTAL DOSE (SINGLE DOSE)
     Route: 042
     Dates: start: 20150311, end: 20150311
  16. CLEMASTINE [Concomitant]
     Active Substance: CLEMASTINE
     Dosage: 2 MG, TOTAL DOSE (SINGLE DOSE)
     Route: 048
     Dates: start: 20150101, end: 20150101
  17. DEXAVEN [Concomitant]
     Active Substance: DEXAMETHASONE
     Dosage: 20 MG, TOTAL DOSE (SINGLE DOSE)
     Route: 042
     Dates: start: 20150211, end: 20150211
  18. CLEMASTINE [Concomitant]
     Active Substance: CLEMASTINE
     Dosage: 2 MG, TOTAL DOSE (SINGLE DOSE)
     Route: 048
     Dates: start: 20150114, end: 20150114
  19. MILURIT [Concomitant]
     Active Substance: ALLOPURINOL
     Route: 048
     Dates: start: 20150217, end: 20150310
  20. CYCLONAMINE [Concomitant]
     Active Substance: ETHAMSYLATE
     Indication: PRODUCT USED FOR UNKNOWN INDICATION
     Route: 048
     Dates: start: 20150128, end: 20150603
  21. BENDAMUSTINE HYDROCHLORIDE [Suspect]
     Active Substance: BENDAMUSTINE HYDROCHLORIDE
     Indication: CHRONIC LYMPHOCYTIC LEUKAEMIA
     Route: 042
     Dates: start: 20141231, end: 20141231
  22. BENDAMUSTINE HYDROCHLORIDE [Suspect]
     Active Substance: BENDAMUSTINE HYDROCHLORIDE
     Route: 042
     Dates: start: 20150101, end: 20150101
  23. BENDAMUSTINE HYDROCHLORIDE [Suspect]
     Active Substance: BENDAMUSTINE HYDROCHLORIDE
     Route: 042
     Dates: start: 20150311, end: 20150311
  24. BENDAMUSTINE HYDROCHLORIDE [Suspect]
     Active Substance: BENDAMUSTINE HYDROCHLORIDE
     Route: 042
     Dates: start: 20150312, end: 20150312
  25. CLEMASTINE [Concomitant]
     Active Substance: CLEMASTINE
     Indication: PRODUCT USED FOR UNKNOWN INDICATION
     Dosage: 2 MG, TOTAL DOSE (SINGLE DOSE)
     Route: 048
     Dates: start: 20141231, end: 20141231
  26. PARACETAMOL [Concomitant]
     Active Substance: ACETAMINOPHEN
     Route: 048
     Dates: start: 20150107, end: 20150107
  27. PARACETAMOL [Concomitant]
     Active Substance: ACETAMINOPHEN
     Route: 048
     Dates: start: 20150114, end: 20150114
  28. PARACETAMOL [Concomitant]
     Active Substance: ACETAMINOPHEN
     Route: 048
     Dates: start: 20150211, end: 20150211
  29. MILURIT [Concomitant]
     Active Substance: ALLOPURINOL
     Indication: PRODUCT USED FOR UNKNOWN INDICATION
     Route: 048
     Dates: start: 20150103, end: 20150127
  30. ENCORTON                           /00044701/ [Concomitant]
     Route: 048
     Dates: start: 20150708, end: 20150712
  31. OBINUTUZUMAB [Suspect]
     Active Substance: OBINUTUZUMAB
     Route: 042
     Dates: start: 20150101, end: 20150101
  32. OBINUTUZUMAB [Suspect]
     Active Substance: OBINUTUZUMAB
     Route: 042
     Dates: start: 20150107, end: 20150107
  33. NIVESTIM [Concomitant]
     Active Substance: FILGRASTIM
     Indication: PRODUCT USED FOR UNKNOWN INDICATION
     Dosage: 0.48 MG, ONCE DAILY
     Route: 058
     Dates: start: 20150105, end: 20150106
  34. PARACETAMOL [Concomitant]
     Active Substance: ACETAMINOPHEN
     Route: 048
     Dates: start: 20150311, end: 20150311
  35. PYRALGIN                           /06276704/ [Concomitant]
     Indication: PRODUCT USED FOR UNKNOWN INDICATION
     Dosage: 2.5 MG, TOTAL DOSE (SINGLE DOSE)
     Route: 042
     Dates: start: 20150102, end: 20150102
  36. FASTURTEC [Concomitant]
     Active Substance: RASBURICASE
     Indication: PRODUCT USED FOR UNKNOWN INDICATION
     Dosage: 4.5 MG, TOTAL DOSE (SINGLE DOSE)
     Route: 042
     Dates: start: 20150102, end: 20150102
  37. LACIDOFIL                          /01699201/ [Concomitant]
     Indication: PRODUCT USED FOR UNKNOWN INDICATION
     Dosage: UNK UNK, TWICE DAILY
     Route: 048
     Dates: start: 20150102, end: 20150107
  38. ENCORTON                           /00044701/ [Concomitant]
     Route: 048
     Dates: start: 20150213, end: 20150717
  39. DEXAVEN [Concomitant]
     Active Substance: DEXAMETHASONE
     Dosage: 20 MG, TOTAL DOSE (SINGLE DOSE)
     Route: 042
     Dates: start: 20150101, end: 20150101
  40. DEXAVEN [Concomitant]
     Active Substance: DEXAMETHASONE
     Dosage: 20 MG, TOTAL DOSE (SINGLE DOSE)
     Route: 042
     Dates: start: 20150114, end: 20150114
  41. BIORACEF [Concomitant]
     Indication: PRODUCT USED FOR UNKNOWN INDICATION
     Route: 048
     Dates: start: 20150107, end: 20150107
  42. MILURIT [Concomitant]
     Active Substance: ALLOPURINOL
     Route: 048
     Dates: start: 20150128, end: 20150208
  43. DANAZOL. [Concomitant]
     Active Substance: DANAZOL
     Indication: PRODUCT USED FOR UNKNOWN INDICATION
     Route: 048
     Dates: start: 20150128, end: 20150702
  44. FOLIC ACID. [Concomitant]
     Active Substance: FOLIC ACID
     Indication: PRODUCT USED FOR UNKNOWN INDICATION
     Route: 048
     Dates: start: 20150128, end: 20150702
  45. BENDAMUSTINE HYDROCHLORIDE [Suspect]
     Active Substance: BENDAMUSTINE HYDROCHLORIDE
     Route: 042
     Dates: start: 20150211, end: 20150211
  46. OBINUTUZUMAB [Suspect]
     Active Substance: OBINUTUZUMAB
     Route: 042
     Dates: start: 20150114, end: 20150114
  47. DEXAMETHASONE. [Concomitant]
     Active Substance: DEXAMETHASONE
     Indication: PRODUCT USED FOR UNKNOWN INDICATION
     Dosage: 20 MG, TOTAL DOSE (SINGLE DOSE)
     Route: 048
     Dates: start: 20141230, end: 20141230
  48. CLEMASTINE [Concomitant]
     Active Substance: CLEMASTINE
     Dosage: 2 MG, TOTAL DOSE (SINGLE DOSE)
     Route: 048
     Dates: start: 20150107, end: 20150107
  49. PARACETAMOL [Concomitant]
     Active Substance: ACETAMINOPHEN
     Indication: PRODUCT USED FOR UNKNOWN INDICATION
     Route: 048
     Dates: start: 20141231, end: 20150104
  50. FASTURTEC [Concomitant]
     Active Substance: RASBURICASE
     Dosage: 3 MG, TOTAL DOSE (SINGLE DOSE)
     Route: 042
     Dates: start: 20150103, end: 20150103
  51. DANAZOL. [Concomitant]
     Active Substance: DANAZOL
     Route: 048
     Dates: start: 20150703, end: 20150707

REACTIONS (2)
  - Pyrexia [Not Recovered/Not Resolved]
  - Chest X-ray abnormal [Not Recovered/Not Resolved]

NARRATIVE: CASE EVENT DATE: 20150707
